FAERS Safety Report 15964517 (Version 2)
Quarter: 2019Q1

REPORT INFORMATION
  Report Type: Spontaneous
  Country: US (occurrence: US)
  Receive Date: 20190215
  Receipt Date: 20190215
  Transmission Date: 20190417
  Serious: Yes (Hospitalization, Other)
  Sender: FDA-Public Use
  Company Number: PHHY2019US029826

PATIENT
  Age: 21 Year
  Sex: Male

DRUGS (2)
  1. RISPERIDONE. [Interacting]
     Active Substance: RISPERIDONE
     Indication: SCHIZOPHRENIA
     Dosage: (INCREASED DOSE)
     Route: 065
  2. ONDANSETRON [Suspect]
     Active Substance: ONDANSETRON
     Indication: GASTROENTERITIS
     Route: 065

REACTIONS (12)
  - Mental status changes [Recovering/Resolving]
  - Dehydration [Unknown]
  - Product use in unapproved indication [Unknown]
  - Malignant catatonia [Unknown]
  - Hyperhidrosis [Unknown]
  - Agitation [Unknown]
  - Tachycardia [Unknown]
  - Drug interaction [Unknown]
  - Unresponsive to stimuli [Unknown]
  - Muscle rigidity [Unknown]
  - Gastroenteritis [Unknown]
  - Schizophrenia [Unknown]
